FAERS Safety Report 22021489 (Version 1)
Quarter: 2023Q1

REPORT INFORMATION
  Report Type: Spontaneous
  Country: US (occurrence: None)
  Receive Date: 20230219
  Receipt Date: 20230219
  Transmission Date: 20230418
  Serious: Yes (Hospitalization)
  Sender: FDA-Public Use
  Company Number: None

PATIENT
  Sex: Male
  Weight: 68.49 kg

DRUGS (15)
  1. ABIRATERONE ACETATE [Suspect]
     Active Substance: ABIRATERONE ACETATE
     Indication: Prostate cancer
     Dosage: 1000MG DAILY ORAL??EXPIRATION  DATE:  31-JUN-2025
     Route: 048
     Dates: start: 202212
  2. DULCOLAX STOOL SOFTENER [Concomitant]
     Active Substance: DOCUSATE SODIUM
  3. FENTANYL [Concomitant]
     Active Substance: FENTANYL
  4. FLOMAX [Concomitant]
     Active Substance: TAMSULOSIN HYDROCHLORIDE
  5. lbandronate [Concomitant]
  6. LIDOCAINE [Concomitant]
     Active Substance: LIDOCAINE
  7. LIDODERM [Concomitant]
     Active Substance: LIDOCAINE
  8. LINACLOTIDE [Concomitant]
     Active Substance: LINACLOTIDE
  9. LINZESS [Concomitant]
     Active Substance: LINACLOTIDE
  10. LUPRON DEPOT [Concomitant]
     Active Substance: LEUPROLIDE ACETATE
  11. NALOXONE [Concomitant]
     Active Substance: NALOXONE
  12. OMEPRAZOLE [Concomitant]
     Active Substance: OMEPRAZOLE
  13. OXYCODONE [Concomitant]
     Active Substance: OXYCODONE
  14. PREDNISONE [Concomitant]
     Active Substance: PREDNISONE
  15. VITAMIN D3 [Concomitant]
     Active Substance: CHOLECALCIFEROL

REACTIONS (4)
  - Back pain [None]
  - Metastases to bone [None]
  - Mass [None]
  - Vomiting [None]
